FAERS Safety Report 9026727 (Version 3)
Quarter: 2013Q1

REPORT INFORMATION
  Report Type: Spontaneous
  Country: JP (occurrence: JP)
  Receive Date: 20130123
  Receipt Date: 20130219
  Transmission Date: 20140127
  Serious: Yes (Other)
  Sender: FDA-Public Use
  Company Number: JP-JNJFOC-20130110530

PATIENT
  Age: 9 Decade
  Sex: Female

DRUGS (2)
  1. TRAMCET [Suspect]
     Indication: PAIN
     Dosage: 1 PER 1 DAY
     Route: 048
  2. UNKNOWN MEDICATION [Suspect]
     Indication: PRODUCT USED FOR UNKNOWN INDICATION
     Route: 065

REACTIONS (1)
  - Delirium [Recovered/Resolved]
